FAERS Safety Report 8789479 (Version 2)
Quarter: 2013Q1

REPORT INFORMATION
  Report Type: Spontaneous
  Country: US (occurrence: None)
  Receive Date: 20120906
  Receipt Date: 20121113
  Transmission Date: 20140127
  Serious: Yes (Other)
  Sender: FDA-Public Use
  Company Number: 2012HGS-003882

PATIENT
  Age: 39 Year
  Sex: Female
  Weight: 145.15 kg

DRUGS (15)
  1. BENLYSTA [Suspect]
     Indication: SYSTEMIC LUPUS ERYTHEMATOSUS
     Dosage: 1 IN 28 D
     Route: 041
     Dates: start: 20120813
  2. ZYRTEC (CETIRIZINE HYDROCHLORIDE) (CETIRIZINE) [Concomitant]
  3. BENADRYL (DIPHENHYDRAMINE HYDROCHLORIDE) (DIPHENHYDRAMINE HYDROCHLORIDE) [Concomitant]
  4. OMEPRAZOLE (OMEPRAZOLE) (OMEPRAZOLE) [Concomitant]
  5. POTASSIUM (POTASSIUM) (POTASSIUM) [Concomitant]
  6. FUROSEMIDE (FUROSEMIDE)(FUROSEMIDE) [Concomitant]
  7. VITAMIN D (ERGOCALCIFEROL) (ERGOCALCIFEROL) [Concomitant]
  8. PLAQUENIL (HYDROCHLOROQUINE SULFATE) (HYDROCHLOROQUINE SULFATE) [Concomitant]
  9. PREDNISONE [Concomitant]
  10. IBUPROFEN (IBUPROFEN)(IBUPROFEN) [Concomitant]
  11. TRAMADOL (TRAMADOL) (TRAMADOL) [Concomitant]
  12. SINGULAIR [Concomitant]
  13. ADVAIR (SERETIDE) (FLUTICASONE PROPIONATE, SALMETEROL XINAFOATE) [Concomitant]
  14. LEVOTHYROXINE (LEVOTHYROXINE) (LEVOTHYROXINE) [Concomitant]
  15. CELLCEPT (MYCOPHENOLATE MOFETIL) (MYCOPHENOLATE MOFETIL) [Concomitant]

REACTIONS (3)
  - Systemic lupus erythematosus [None]
  - Fatigue [None]
  - Sedation [None]
